FAERS Safety Report 9638698 (Version 2)
Quarter: 2013Q4

REPORT INFORMATION
  Report Type: Spontaneous
  Country: US (occurrence: US)
  Receive Date: 20131022
  Receipt Date: 20131022
  Transmission Date: 20140711
  Serious: No
  Sender: FDA-Public Use
  Company Number: US-BRISTOL-MYERS SQUIBB COMPANY-19247360

PATIENT
  Age: 74 Year
  Sex: Male
  Weight: 104.31 kg

DRUGS (4)
  1. ELIQUIS [Suspect]
     Indication: ATRIAL FIBRILLATION
     Dosage: ONGOING
     Route: 048
     Dates: start: 20130828
  2. PLAVIX [Concomitant]
     Indication: STENT PLACEMENT
  3. MOTRIN [Concomitant]
     Indication: BACK PAIN
  4. ASPIRIN [Concomitant]
     Indication: BACK PAIN

REACTIONS (5)
  - Musculoskeletal pain [Recovering/Resolving]
  - Headache [Unknown]
  - Fatigue [Recovered/Resolved]
  - Back pain [Recovered/Resolved]
  - Arthralgia [Unknown]
